FAERS Safety Report 7971062-X (Version None)
Quarter: 2011Q4

REPORT INFORMATION
  Report Type: 
  Country: None (occurrence: None)
  Receive Date: 20111212
  Receipt Date: 20111201
  Transmission Date: 20120403
  Serious: Yes (Other)
  Sender: FDA-Public Use
  Company Number: US-ASTRAZENECA-2009UW05483

PATIENT
  Age: 60 Year
  Sex: Female

DRUGS (1)
  1. NEXIUM [Suspect]
     Route: 048
     Dates: start: 19990101

REACTIONS (12)
  - SLEEP DISORDER DUE TO GENERAL MEDICAL CONDITION, INSOMNIA TYPE [None]
  - ABDOMINAL DISCOMFORT [None]
  - HERNIA [None]
  - INSULIN RESISTANCE SYNDROME [None]
  - PNEUMOTHORAX [None]
  - DYSPNOEA [None]
  - HYPERTENSION [None]
  - DRUG DOSE OMISSION [None]
  - ASTHENIA [None]
  - WEIGHT INCREASED [None]
  - DYSPEPSIA [None]
  - DIZZINESS [None]
